FAERS Safety Report 4776642-0 (Version None)
Quarter: 2005Q3

REPORT INFORMATION
  Report Type: 
  Country: None (occurrence: None)
  Receive Date: 20050921
  Receipt Date: 20050909
  Transmission Date: 20060218
  Serious: Yes (Disabling, Other)
  Sender: FDA-Public Use
  Company Number: 200511883BWH

PATIENT
  Age: 45 Year
  Sex: Male

DRUGS (1)
  1. LEVITRA [Suspect]
     Indication: ERECTILE DYSFUNCTION
     Dosage: 10 MG, TOTAL DAILY, ORAL
     Route: 048

REACTIONS (3)
  - BLINDNESS UNILATERAL [None]
  - RETINAL VEIN OCCLUSION [None]
  - VISION BLURRED [None]
